FAERS Safety Report 10427756 (Version 2)
Quarter: 2018Q1

REPORT INFORMATION
  Report Type: Spontaneous
  Country: IN (occurrence: IN)
  Receive Date: 20140903
  Receipt Date: 20180201
  Transmission Date: 20180508
  Serious: No
  Sender: FDA-Public Use
  Company Number: PHHY2014IN109366

PATIENT

DRUGS (2)
  1. PREDNISOLONE ACETATE. [Concomitant]
     Active Substance: PREDNISOLONE ACETATE
     Indication: POSTOPERATIVE CARE
     Dosage: UNK (10-12 TIMES PER DAY)
     Route: 047
  2. CIPROFLOXACIN. [Suspect]
     Active Substance: CIPROFLOXACIN
     Indication: POSTOPERATIVE CARE
     Dosage: UNK (10-12 TIMES PER DAY)
     Route: 047

REACTIONS (3)
  - Visual acuity reduced [Recovered/Resolved]
  - Corneal deposits [Recovered/Resolved]
  - Product use in unapproved indication [Unknown]
